FAERS Safety Report 8433812-8 (Version None)
Quarter: 2012Q2

REPORT INFORMATION
  Report Type: 
  Country: None (occurrence: None)
  Receive Date: 20120613
  Receipt Date: 20120611
  Transmission Date: 20120825
  Serious: Yes (Other)
  Sender: FDA-Public Use
  Company Number: US-PFIZER INC-2012109241

PATIENT
  Sex: Male
  Weight: 88.435 kg

DRUGS (8)
  1. CHANTIX [Suspect]
     Dosage: 1 MG, 2X/DAY
     Route: 048
     Dates: start: 20120401, end: 20120501
  2. CHANTIX [Suspect]
     Indication: SMOKING CESSATION THERAPY
     Dosage: 0.5 MG, 1X/DAY
     Route: 048
     Dates: start: 20120301, end: 20120401
  3. SENNA [Concomitant]
     Indication: CONSTIPATION
     Dosage: UNK
  4. GABAPENTIN [Concomitant]
     Dosage: 300 MG, 3X/DAY
  5. TAPAZOLE [Concomitant]
     Dosage: UNK
  6. SERTRALINE [Concomitant]
     Dosage: 50 MG, UNK
  7. DOCUSATE [Concomitant]
     Indication: CONSTIPATION
     Dosage: UNK
  8. MORPHINE [Concomitant]
     Dosage: UNK 2X/DAY

REACTIONS (4)
  - RASH GENERALISED [None]
  - SCRATCH [None]
  - GENITAL RASH [None]
  - CONSTIPATION [None]
